FAERS Safety Report 4885326-X (Version None)
Quarter: 2006Q1

REPORT INFORMATION
  Report Type: 
  Country: None (occurrence: None)
  Receive Date: 20060119
  Receipt Date: 20060111
  Transmission Date: 20060701
  Serious: Yes (Other)
  Sender: FDA-Public Use
  Company Number: PHBS2006BE00776

PATIENT

DRUGS (5)
  1. PAMIDRONATE DISODIUM [Suspect]
     Indication: MULTIPLE MYELOMA
     Dosage: 60 MG
  2. RADIOTHERAPY [Concomitant]
     Dosage: 8 FRACTIONS
     Route: 065
     Dates: start: 20030301
  3. ALKERAN [Concomitant]
     Dosage: 9 TIMES
     Route: 065
     Dates: end: 20050801
  4. MEDROL [Concomitant]
     Dosage: 9 TIMES
     Route: 065
     Dates: end: 20050801
  5. ZOMETA [Suspect]
     Indication: MULTIPLE MYELOMA
     Route: 065

REACTIONS (4)
  - BONE DISORDER [None]
  - MALIGNANT NEOPLASM PROGRESSION [None]
  - OSTEONECROSIS [None]
  - RENAL FAILURE [None]
